FAERS Safety Report 21210026 (Version 1)
Quarter: 2022Q3

REPORT INFORMATION
  Report Type: Spontaneous
  Country: UA (occurrence: US)
  Receive Date: 20220813
  Receipt Date: 20220813
  Transmission Date: 20221026
  Serious: No
  Sender: FDA-Public Use
  Company Number: UA-NOVARTISTESTPH-NVSC2022US183803

PATIENT
  Sex: Female

DRUGS (1)
  1. LETROZOLE [Suspect]
     Active Substance: LETROZOLE
     Indication: Product used for unknown indication
     Dosage: UNK
     Route: 065

REACTIONS (8)
  - Arthralgia [Unknown]
  - Fatigue [Unknown]
  - Rhinalgia [Unknown]
  - Muscle strain [Unknown]
  - Haemorrhoids [Unknown]
  - Dysphonia [Unknown]
  - Muscle spasms [Unknown]
  - Muscle tightness [Unknown]
